FAERS Safety Report 18666022 (Version 1)
Quarter: 2020Q4

REPORT INFORMATION
  Report Type: Spontaneous
  Country: US (occurrence: US)
  Receive Date: 20201226
  Receipt Date: 20201226
  Transmission Date: 20210114
  Serious: Yes (Other)
  Sender: FDA-Public Use
  Company Number: US-UCBSA-2020052841

PATIENT
  Age: 59 Year
  Sex: Female

DRUGS (2)
  1. CIMZIA [Suspect]
     Active Substance: CERTOLIZUMAB PEGOL
     Indication: PSORIASIS
     Dosage: 400 MILLIGRAM, WEEKLY (QW)
     Route: 058
     Dates: start: 20190405
  2. CIMZIA [Suspect]
     Active Substance: CERTOLIZUMAB PEGOL
     Indication: PSORIATIC ARTHROPATHY

REACTIONS (7)
  - Bacterial infection [Unknown]
  - Diabetes mellitus [Unknown]
  - Psoriasis [Unknown]
  - Injection site pain [Unknown]
  - Psoriatic arthropathy [Unknown]
  - Fungal infection [Unknown]
  - Product use issue [Unknown]

NARRATIVE: CASE EVENT DATE: 20190405
